FAERS Safety Report 9320646 (Version 3)
Quarter: 2013Q4

REPORT INFORMATION
  Report Type: Spontaneous
  Country: US (occurrence: US)
  Receive Date: 20130531
  Receipt Date: 20131204
  Transmission Date: 20140711
  Serious: Yes (Hospitalization)
  Sender: FDA-Public Use
  Company Number: US-BIOGENIDEC-2013BI045838

PATIENT
  Sex: Female

DRUGS (2)
  1. TYSABRI [Suspect]
     Indication: CROHN^S DISEASE
     Route: 042
     Dates: start: 20130227
  2. TYSABRI [Suspect]
     Indication: CROHN^S DISEASE

REACTIONS (4)
  - Sepsis [Recovered/Resolved]
  - Crohn^s disease [Unknown]
  - Device related infection [Recovered/Resolved]
  - Clostridium difficile infection [Recovered/Resolved]
